FAERS Safety Report 18330297 (Version 3)
Quarter: 2022Q1

REPORT INFORMATION
  Report Type: Report from Study
  Country: CO (occurrence: CO)
  Receive Date: 20200930
  Receipt Date: 20220122
  Transmission Date: 20220423
  Serious: Yes (Other)
  Sender: FDA-Public Use
  Company Number: CO-JNJFOC-20200932183

PATIENT
  Age: 48 Year
  Sex: Female
  Weight: 58 kg

DRUGS (15)
  1. MACITENTAN [Suspect]
     Active Substance: MACITENTAN
     Indication: Pulmonary arterial hypertension
     Route: 048
     Dates: start: 20200211
  2. MACITENTAN [Suspect]
     Active Substance: MACITENTAN
     Route: 048
     Dates: start: 20181218
  3. METHOTREXATE [Suspect]
     Active Substance: METHOTREXATE
     Indication: Product used for unknown indication
     Route: 065
  4. BELIMUMAB [Suspect]
     Active Substance: BELIMUMAB
     Indication: Systemic lupus erythematosus
     Route: 065
  5. SILDENAFIL [Concomitant]
     Active Substance: SILDENAFIL
     Indication: Pain
  6. LEVOTHYROXINE [Concomitant]
     Active Substance: LEVOTHYROXINE
     Indication: Thyroid disorder
  7. TRAMADOL [Concomitant]
     Active Substance: TRAMADOL
     Indication: Pain
  8. CAPTOPRIL [Concomitant]
     Active Substance: CAPTOPRIL
  9. RIOCIGUAT [Concomitant]
     Active Substance: RIOCIGUAT
     Indication: Pain
  10. NIFEDIPINE [Concomitant]
     Active Substance: NIFEDIPINE
  11. LOSARTAN [Concomitant]
     Active Substance: LOSARTAN
  12. PREDNISOLONE [Concomitant]
     Active Substance: PREDNISOLONE
  13. ATORVASTATIN [Concomitant]
     Active Substance: ATORVASTATIN
  14. ASPIRIN [Concomitant]
     Active Substance: ASPIRIN
  15. CHLOROQUINE [Concomitant]
     Active Substance: CHLOROQUINE

REACTIONS (7)
  - Discouragement [Not Recovered/Not Resolved]
  - Insomnia [Not Recovered/Not Resolved]
  - Increased appetite [Not Recovered/Not Resolved]
  - Somnolence [Not Recovered/Not Resolved]
  - Anaemia [Not Recovered/Not Resolved]
  - Pulmonary arterial hypertension [Not Recovered/Not Resolved]
  - Furuncle [Not Recovered/Not Resolved]

NARRATIVE: CASE EVENT DATE: 20200801
